FAERS Safety Report 4473624-3 (Version None)
Quarter: 2004Q4

REPORT INFORMATION
  Report Type: 
  Country: None (occurrence: None)
  Receive Date: 20041013
  Receipt Date: 20041007
  Transmission Date: 20050328
  Serious: Yes (Life-Threatening, Hospitalization, Disabling)
  Sender: FDA-Public Use
  Company Number: NL-MERCK-0410NLD00009

PATIENT
  Age: 49 Year
  Sex: Male

DRUGS (3)
  1. ANAFRANIL [Concomitant]
     Route: 065
  2. ORAP [Concomitant]
     Route: 065
  3. VIOXX [Suspect]
     Indication: OSTEOARTHRITIS
     Route: 048
     Dates: start: 20000518, end: 20041001

REACTIONS (1)
  - MYOCARDIAL INFARCTION [None]
